FAERS Safety Report 8225948-1 (Version None)
Quarter: 2012Q1

REPORT INFORMATION
  Report Type: 
  Country: None (occurrence: None)
  Receive Date: 20120321
  Receipt Date: 20120316
  Transmission Date: 20120608
  Serious: Yes (Hospitalization)
  Sender: FDA-Public Use
  Company Number: JP-PFIZER INC-2012070034

PATIENT
  Age: 66 Year
  Sex: Male

DRUGS (11)
  1. AZULFIDINE [Suspect]
     Indication: RHEUMATOID ARTHRITIS
     Dosage: 1000 MG, 1X/DAY
     Route: 048
     Dates: end: 20120301
  2. STANZOME [Suspect]
     Dosage: UNK
  3. PROPIVERINE HYDROCHLORIDE [Concomitant]
     Dosage: UNK
  4. FAMOTIDINE [Concomitant]
     Dosage: UNK
  5. AMLODIPINE [Concomitant]
     Dosage: UNK
  6. PURSENNID [Concomitant]
     Dosage: UNK
  7. GLIMEPIRIDE [Concomitant]
     Dosage: UNK
  8. SITAGLIPTIN PHOSPHATE [Concomitant]
     Dosage: UNK
  9. AZELASTINE HYDROCHLORIDE [Concomitant]
     Dosage: UNK
  10. LOXONIN [Concomitant]
     Dosage: UNK
  11. REBAMIPIDE [Concomitant]
     Dosage: UNK

REACTIONS (2)
  - PYELONEPHRITIS [None]
  - GRANULOCYTOPENIA [None]
